FAERS Safety Report 8010354-5 (Version None)
Quarter: 2011Q4

REPORT INFORMATION
  Report Type: 
  Country: None (occurrence: None)
  Receive Date: 20111228
  Receipt Date: 20111221
  Transmission Date: 20120403
  Serious: Yes (Other)
  Sender: FDA-Public Use
  Company Number: ES-JNJFOC-20111210630

PATIENT
  Age: 80 Year
  Sex: Female

DRUGS (1)
  1. TRAMADOL HCL [Suspect]
     Indication: OSTEOARTHRITIS
     Route: 048
     Dates: start: 20111021, end: 20111111

REACTIONS (3)
  - HALLUCINATION, VISUAL [None]
  - DIZZINESS [None]
  - DISORIENTATION [None]
